FAERS Safety Report 12476080 (Version 1)
Quarter: 2016Q2

REPORT INFORMATION
  Report Type: Spontaneous
  Country: US (occurrence: US)
  Receive Date: 20160617
  Receipt Date: 20160617
  Transmission Date: 20160815
  Serious: Yes (Hospitalization)
  Sender: FDA-Public Use
  Company Number: US-SA-2016SA107809

PATIENT
  Age: 50 Year
  Sex: Female

DRUGS (5)
  1. CYCLOPHOSPHAMIDE. [Suspect]
     Active Substance: CYCLOPHOSPHAMIDE
     Indication: INVASIVE DUCTAL BREAST CARCINOMA
     Dosage: INFUSION
     Route: 065
  2. DOCETAXEL. [Suspect]
     Active Substance: DOCETAXEL
     Indication: INVASIVE DUCTAL BREAST CARCINOMA
     Dosage: INFUSION
     Route: 065
  3. NORMAL SALINE [Concomitant]
     Active Substance: SODIUM CHLORIDE
     Indication: FLUID REPLACEMENT
     Dosage: IV BOLUS
     Route: 040
  4. CYCLOPHOSPHAMIDE. [Suspect]
     Active Substance: CYCLOPHOSPHAMIDE
     Indication: INVASIVE DUCTAL BREAST CARCINOMA
     Dosage: INFUSION
     Route: 065
  5. DOCETAXEL. [Suspect]
     Active Substance: DOCETAXEL
     Indication: INVASIVE DUCTAL BREAST CARCINOMA
     Dosage: INFUSION
     Route: 065

REACTIONS (9)
  - Back pain [Recovering/Resolving]
  - Atelectasis [Unknown]
  - Breath sounds absent [Recovering/Resolving]
  - Percussion test abnormal [Recovering/Resolving]
  - Dyspnoea [Recovering/Resolving]
  - Pleural effusion [Recovering/Resolving]
  - Pleurisy [Recovering/Resolving]
  - Incorrect route of drug administration [Unknown]
  - Wrong technique in product usage process [Unknown]
